FAERS Safety Report 19795240 (Version 1)
Quarter: 2021Q3

REPORT INFORMATION
  Report Type: Spontaneous
  Country: US (occurrence: US)
  Receive Date: 20210903
  Receipt Date: 20210903
  Transmission Date: 20211014
  Serious: No
  Sender: FDA-Public Use
  Company Number: None

PATIENT
  Age: 73 Year
  Sex: Female
  Weight: 65 kg

DRUGS (9)
  1. ATORVASTATIN 10MG [Concomitant]
     Active Substance: ATORVASTATIN
  2. METFORMIN [Concomitant]
     Active Substance: METFORMIN HYDROCHLORIDE
  3. ATENOLOL 50MG [Concomitant]
     Active Substance: ATENOLOL
  4. GLIPIZIDE 10MG [Concomitant]
     Active Substance: GLIPIZIDE
  5. PANTOPRAZOLE 40MG [Concomitant]
     Active Substance: PANTOPRAZOLE SODIUM
  6. IMATINIB MESYLATE. [Suspect]
     Active Substance: IMATINIB MESYLATE
     Route: 048
     Dates: start: 20210623
  7. AMLODIPINE [Concomitant]
     Active Substance: AMLODIPINE BESYLATE
  8. TRAMADOL. [Concomitant]
     Active Substance: TRAMADOL
  9. IMATINIB MESYLATE. [Suspect]
     Active Substance: IMATINIB MESYLATE
     Indication: GASTRIC NEOPLASM
     Route: 048
     Dates: start: 20210623

REACTIONS (2)
  - Dizziness [None]
  - Decreased appetite [None]

NARRATIVE: CASE EVENT DATE: 20210903
